FAERS Safety Report 23266160 (Version 3)
Quarter: 2024Q1

REPORT INFORMATION
  Report Type: Other
  Country: JP (occurrence: None)
  Receive Date: 20231206
  Receipt Date: 20240215
  Transmission Date: 20240409
  Serious: Yes (Other)
  Sender: FDA-Public Use
  Company Number: JP-ROCHE-3469433

PATIENT
  Age: 8 Year
  Sex: Male

DRUGS (5)
  1. RITUXAN [Suspect]
     Active Substance: RITUXIMAB
     Indication: Nephrotic syndrome
     Route: 041
  2. CYCLOSPORINE [Concomitant]
     Active Substance: CYCLOSPORINE
  3. METHYLPREDNISOLONE [Concomitant]
     Active Substance: METHYLPREDNISOLONE
  4. ALBUMIN HUMAN [Concomitant]
     Active Substance: ALBUMIN HUMAN
  5. HUMAN IMMUNOGLOBULIN G [Concomitant]
     Active Substance: HUMAN IMMUNOGLOBULIN G

REACTIONS (2)
  - Septic shock [Recovering/Resolving]
  - Off label use [Unknown]
